FAERS Safety Report 9174406 (Version 1)
Quarter: 2013Q1

REPORT INFORMATION
  Report Type: Spontaneous
  Country: US (occurrence: US)
  Receive Date: 20130320
  Receipt Date: 20130320
  Transmission Date: 20140127
  Serious: No
  Sender: FDA-Public Use
  Company Number: US-009507513-1303USA003331

PATIENT
  Sex: Male

DRUGS (1)
  1. COPPERTONE [Suspect]
     Indication: PRODUCT USED FOR UNKNOWN INDICATION
     Dosage: UNK, UNKNOWN
     Route: 061

REACTIONS (4)
  - Eye irritation [Recovering/Resolving]
  - Pain [Recovering/Resolving]
  - Eye pain [Not Recovered/Not Resolved]
  - Accidental exposure to product [Unknown]
